FAERS Safety Report 6145026-5 (Version None)
Quarter: 2009Q2

REPORT INFORMATION
  Report Type: 
  Country: None (occurrence: None)
  Receive Date: 20090406
  Receipt Date: 20090203
  Transmission Date: 20091009
  Serious: Yes (Hospitalization)
  Sender: FDA-Public Use
  Company Number: US-BRISTOL-MYERS SQUIBB COMPANY-14546832

PATIENT
  Age: 62 Year
  Sex: Male
  Weight: 73 kg

DRUGS (21)
  1. CETUXIMAB [Suspect]
     Indication: NON-SMALL CELL LUNG CANCER METASTATIC
     Route: 042
     Dates: start: 20081027, end: 20081027
  2. PACLITAXEL [Suspect]
     Indication: NON-SMALL CELL LUNG CANCER METASTATIC
     Route: 042
     Dates: start: 20081027, end: 20081027
  3. CARBOPLATIN [Suspect]
     Indication: NON-SMALL CELL LUNG CANCER METASTATIC
     Route: 042
     Dates: start: 20081027, end: 20081027
  4. BEVACIZUMAB [Suspect]
     Indication: NON-SMALL CELL LUNG CANCER METASTATIC
  5. GLIPIZIDE [Concomitant]
     Route: 065
  6. DECADRON [Concomitant]
     Route: 065
     Dates: start: 20080901
  7. RADIOTHERAPY [Concomitant]
     Indication: NON-SMALL CELL LUNG CANCER METASTATIC
     Route: 065
     Dates: start: 20080901
  8. NEULASTA [Concomitant]
     Route: 065
     Dates: start: 20081028, end: 20081028
  9. MS CONTIN [Concomitant]
     Route: 065
  10. DILAUDID [Concomitant]
     Dosage: 4MG, ONCE EVERY 6 HOURS PRN
  11. NORVASC [Concomitant]
     Route: 065
  12. DYAZIDE [Concomitant]
     Route: 065
  13. TAZTIA [Concomitant]
     Dosage: TAZTIA XT
     Route: 065
  14. OXYCET [Concomitant]
     Route: 065
  15. MUCINEX [Concomitant]
     Route: 065
  16. OXYCONTIN [Concomitant]
     Route: 065
  17. OXYCODONE HCL [Concomitant]
     Dosage: 5 MG, EVERY 6 HOURS PRN.
     Route: 065
  18. FLAGYL [Concomitant]
     Route: 048
  19. XOPENEX [Concomitant]
     Dosage: 2 DOSAGE FORM= 2 PUFFS (PRN EVERY 6 HOURS) INHALER
  20. ATROVENT [Concomitant]
     Dosage: 2 DOSAGE FORM= 2 PUFFS EVERY 6 HOURS
     Route: 065
  21. OMNICEF [Concomitant]
     Route: 048

REACTIONS (3)
  - CELLULITIS [None]
  - DEEP VEIN THROMBOSIS [None]
  - LOBAR PNEUMONIA [None]
